FAERS Safety Report 12599019 (Version 1)
Quarter: 2016Q3

REPORT INFORMATION
  Report Type: Spontaneous
  Country: US (occurrence: US)
  Receive Date: 20160727
  Receipt Date: 20160727
  Transmission Date: 20161109
  Serious: Yes (Other)
  Sender: FDA-Public Use
  Company Number: US-BEH-2015057212

PATIENT
  Sex: Male

DRUGS (3)
  1. MONOCLATE-P [Suspect]
     Active Substance: ANTIHEMOPHILIC FACTOR HUMAN
  2. MONOCLATE-P [Suspect]
     Active Substance: ANTIHEMOPHILIC FACTOR HUMAN
     Indication: PRODUCT USED FOR UNKNOWN INDICATION
  3. MONOCLATE-P [Suspect]
     Active Substance: ANTIHEMOPHILIC FACTOR HUMAN

REACTIONS (1)
  - Drug ineffective [Unknown]
